FAERS Safety Report 7397004-6 (Version None)
Quarter: 2011Q1

REPORT INFORMATION
  Report Type: 
  Country: None (occurrence: None)
  Receive Date: 20110328
  Receipt Date: 20110314
  Transmission Date: 20110831
  Serious: Yes (Death, Other)
  Sender: FDA-Public Use
  Company Number: TW-2011-0666

PATIENT
  Age: 20 Year
  Sex: Female

DRUGS (6)
  1. NAVELBINE [Suspect]
     Dosage: 20 MG/M2 QD IV
     Route: 042
  2. GEMCITABINE [Suspect]
     Indication: PRECURSOR B-LYMPHOBLASTIC LYMPHOMA
     Dosage: 10 MG/M2
  3. THIOTEPA [Suspect]
     Indication: PRECURSOR B-LYMPHOBLASTIC LYMPHOMA
     Dosage: 15 MG/M2 QD
  4. CISPLATIN [Suspect]
     Indication: PRECURSOR B-LYMPHOBLASTIC LYMPHOMA
     Dosage: 30 MG/M2 QD
  5. TOPOTECAN [Suspect]
     Indication: PRECURSOR B-LYMPHOBLASTIC LYMPHOMA
     Dosage: 1 MG/M2 QD
  6. DEXAMETHASONE [Suspect]
     Indication: PRECURSOR B-LYMPHOBLASTIC LYMPHOMA
     Dosage: 45 MG/M2 QD

REACTIONS (2)
  - HYPERAMMONAEMIA [None]
  - NEUTROPENIA [None]
